FAERS Safety Report 10041396 (Version 1)
Quarter: 2014Q1

REPORT INFORMATION
  Report Type: Spontaneous
  Country: US (occurrence: None)
  Receive Date: 20140326
  Receipt Date: 20140326
  Transmission Date: 20141002
  Serious: Yes (Hospitalization)
  Sender: FDA-Public Use
  Company Number: None

PATIENT
  Age: 8 Year
  Sex: Female
  Weight: 17.6 kg

DRUGS (16)
  1. ANAKINRA [Suspect]
     Indication: HISTIOCYTOSIS HAEMATOPHAGIC
     Route: 042
  2. AMLODIPINE [Concomitant]
  3. BUDESONIDE [Concomitant]
  4. CAFFEINE [Concomitant]
  5. CALCIUM PHOSPHATE TRIBASIC COLLOIDAL SILICON DIOXIDE [Concomitant]
  6. CEFEPIME [Concomitant]
  7. CETIRIZINE [Concomitant]
  8. ERYTHROMYCIN [Concomitant]
  9. FERROUS SULFATE [Concomitant]
  10. GLYCOPYRROLATE [Concomitant]
  11. HEPAIN FLUSH [Concomitant]
  12. CULTURELLE DS [Concomitant]
  13. LANSOPRAZOLE [Concomitant]
  14. ONDANSETRON [Concomitant]
  15. VANCOMYCIN [Concomitant]
  16. MUPIROCIN [Concomitant]

REACTIONS (3)
  - Neutropenia [None]
  - Device related infection [None]
  - Staphylococcal infection [None]
